FAERS Safety Report 20823113 (Version 1)
Quarter: 2022Q2

REPORT INFORMATION
  Report Type: Report from Study
  Country: JP (occurrence: JP)
  Receive Date: 20220512
  Receipt Date: 20220512
  Transmission Date: 20220720
  Serious: Yes (Other)
  Sender: FDA-Public Use
  Company Number: JP-SUN PHARMACEUTICAL INDUSTRIES LTD-2022R1-336690

PATIENT
  Age: 83 Year
  Sex: Male
  Weight: 51.8 kg

DRUGS (1)
  1. ASPIRIN [Suspect]
     Active Substance: ASPIRIN
     Indication: Thrombosis
     Dosage: UNK (LOW DOSE)
     Route: 065

REACTIONS (1)
  - Pneumonia [Unknown]
